FAERS Safety Report 5469422-4 (Version None)
Quarter: 2007Q3

REPORT INFORMATION
  Report Type: 
  Country: None (occurrence: None)
  Receive Date: 20070925
  Receipt Date: 20070925
  Transmission Date: 20080115
  Serious: Yes (Hospitalization, Other)
  Sender: FDA-Public Use
  Company Number: None

PATIENT
  Sex: Female

DRUGS (2)
  1. COPAXONE [Suspect]
     Indication: MULTIPLE SCLEROSIS
     Dosage: 20MG  DAILY  SQ
     Route: 058
     Dates: start: 20050930, end: 20070828
  2. ARAVA [Suspect]
     Indication: RHEUMATOID ARTHRITIS
     Dosage: 20MG  DAILY  PO
     Route: 048
     Dates: start: 20070815, end: 20070828

REACTIONS (3)
  - DRUG INTERACTION [None]
  - PALPITATIONS [None]
  - PARAESTHESIA [None]
